FAERS Safety Report 5441223-2 (Version None)
Quarter: 2007Q3

REPORT INFORMATION
  Report Type: 
  Country: None (occurrence: None)
  Receive Date: 20070901
  Receipt Date: 20070822
  Transmission Date: 20080115
  Serious: Yes (Other)
  Sender: FDA-Public Use
  Company Number: US-PFIZER INC-2007070390

PATIENT
  Sex: Female
  Weight: 56.7 kg

DRUGS (4)
  1. NEURONTIN [Suspect]
     Indication: PERIPHERAL NERVE INJURY
  2. NEURONTIN [Suspect]
     Indication: MUSCLE SPASMS
  3. ZYPREXA [Concomitant]
  4. ATIVAN [Concomitant]

REACTIONS (1)
  - GRAND MAL CONVULSION [None]
